FAERS Safety Report 5012923-3 (Version None)
Quarter: 2006Q2

REPORT INFORMATION
  Report Type: 
  Country: None (occurrence: None)
  Receive Date: 20060530
  Receipt Date: 20060524
  Transmission Date: 20061013
  Serious: Yes (Other)
  Sender: FDA-Public Use
  Company Number: US-JNJFOC-20060503014

PATIENT
  Sex: Female

DRUGS (3)
  1. ARESTIN [Suspect]
     Indication: PERIODONTITIS
     Route: 004
  2. HERBAL MEDICATION [Concomitant]
  3. NEXIUM [Concomitant]

REACTIONS (2)
  - ACCIDENTAL EXPOSURE [None]
  - HYPERSENSITIVITY [None]
